FAERS Safety Report 9700907 (Version 3)
Quarter: 2014Q4

REPORT INFORMATION
  Report Type: Spontaneous
  Country: GB (occurrence: None)
  Receive Date: 20131119
  Receipt Date: 20141003
  Transmission Date: 20150529
  Serious: Yes (Death, Other)
  Sender: FDA-Public Use
  Company Number: CL-533-2013

PATIENT
  Age: 86 Year
  Sex: Female
  Weight: 70 kg

DRUGS (6)
  1. METRONIDAZOLE (500 MG/100 ML ) UNK [Suspect]
     Active Substance: METRONIDAZOLE
     Indication: ABDOMINAL INFECTION
     Route: 042
     Dates: start: 20121025, end: 20121025
  2. MAGNESIUM GLYCEROPHOSPHATE [Concomitant]
     Active Substance: MAGNESIUM GLYCEROPHOSPHATE
  3. PIPERACILLIN /TAZOBACTAM UNK [Suspect]
     Active Substance: PIPERACILLIN SODIUM\TAZOBACTAM SODIUM
     Indication: SEPSIS
     Dosage: 4.5 G?TDS?IV
     Route: 042
     Dates: start: 20131018, end: 20131025
  4. LATANOPROST. [Concomitant]
     Active Substance: LATANOPROST
  5. PIPERACILLIN /TAZOBACTAM UNK [Suspect]
     Active Substance: PIPERACILLIN SODIUM\TAZOBACTAM SODIUM
     Indication: LIVER ABSCESS
     Dosage: 4.5 G?TDS?IV
     Route: 042
     Dates: start: 20131018, end: 20131025
  6. BRINZOLAMIDE (TOPICAL) [Concomitant]

REACTIONS (7)
  - Hepatic lesion [None]
  - Drug administration error [None]
  - Anaphylactic shock [None]
  - Hypovolaemic shock [None]
  - Lactic acidosis [None]
  - Anaphylactic reaction [None]
  - Renal impairment [None]

NARRATIVE: CASE EVENT DATE: 20131025
